FAERS Safety Report 16487809 (Version 1)
Quarter: 2019Q2

REPORT INFORMATION
  Report Type: Report from Study
  Country: US (occurrence: US)
  Receive Date: 20190627
  Receipt Date: 20190627
  Transmission Date: 20190711
  Serious: Yes (Hospitalization, Other)
  Sender: FDA-Public Use
  Company Number: US-ADAMAS PHARMA, LLC-2018ADA01770

PATIENT
  Age: 82 Year
  Sex: Female
  Weight: 48.07 kg

DRUGS (10)
  1. GOCOVRI [Suspect]
     Active Substance: AMANTADINE
     Dosage: 274 MG 1X/DAY AT BEDTIME
     Route: 048
     Dates: end: 20190516
  2. NEUPRO [Concomitant]
     Active Substance: ROTIGOTINE
  3. ATIVAN [Concomitant]
     Active Substance: LORAZEPAM
  4. XANAX [Concomitant]
     Active Substance: ALPRAZOLAM
  5. GOCOVRI [Suspect]
     Active Substance: AMANTADINE
     Dosage: 274 MG, 1X/DAY AT BEDTIME
     Route: 048
  6. SINEMET [Concomitant]
     Active Substance: CARBIDOPA\LEVODOPA
     Dosage: 1.5 TABLETS, 3X/DAY
  7. SINEMET [Concomitant]
     Active Substance: CARBIDOPA\LEVODOPA
     Dosage: 1 TABLET, 2X/DAY
  8. GOCOVRI [Suspect]
     Active Substance: AMANTADINE
     Dosage: 274 MG 1X/DAY AT BEDTIME
     Route: 048
  9. GOCOVRI [Suspect]
     Active Substance: AMANTADINE
     Indication: DYSKINESIA
     Dosage: 274 MG, 1X/DAY AT BEDTIME
     Route: 048
     Dates: start: 20180409
  10. METOPROLOL XL [Concomitant]
     Active Substance: METOPROLOL SUCCINATE
     Indication: BLOOD PRESSURE MANAGEMENT
     Dosage: UNK, 1X/DAY

REACTIONS (21)
  - Oedema peripheral [Recovering/Resolving]
  - Constipation [Unknown]
  - Intestinal obstruction [Recovering/Resolving]
  - Abdominal operation [Recovering/Resolving]
  - Dry mouth [Recovering/Resolving]
  - Withdrawal syndrome [Recovering/Resolving]
  - Ureteral stent insertion [Recovering/Resolving]
  - Oedema [Unknown]
  - Gait disturbance [Recovering/Resolving]
  - Partial seizures [Recovering/Resolving]
  - Dysgeusia [Not Recovered/Not Resolved]
  - Fall [Unknown]
  - Dysphagia [Recovered/Resolved]
  - Ageusia [Recovering/Resolving]
  - Weight decreased [Unknown]
  - Skin laceration [Unknown]
  - Ureteric stenosis [Recovering/Resolving]
  - Hydronephrosis [Recovering/Resolving]
  - Accidental overdose [Recovering/Resolving]
  - Decreased appetite [None]
  - Abdominal adhesions [Recovering/Resolving]

NARRATIVE: CASE EVENT DATE: 2018
